FAERS Safety Report 19515632 (Version 1)
Quarter: 2021Q3

REPORT INFORMATION
  Report Type: Spontaneous
  Country: DE (occurrence: DE)
  Receive Date: 20210709
  Receipt Date: 20210709
  Transmission Date: 20211014
  Serious: Yes (Hospitalization)
  Sender: FDA-Public Use
  Company Number: DE-ELI_LILLY_AND_COMPANY-DE202106013487

PATIENT
  Sex: Male

DRUGS (5)
  1. INSULIN [Suspect]
     Active Substance: INSULIN NOS
     Indication: DIABETES MELLITUS
     Dosage: UNK, UNKNOWN
     Route: 065
  2. HUMINSULIN REGULAR [Suspect]
     Active Substance: INSULIN HUMAN
     Indication: DIABETES MELLITUS
     Dosage: 8, 11 AND 7 IUS, RESPECTIVELY, THREE TIMES A DAY, AND 5 IUS EXTRA IF NEEDED
     Route: 058
     Dates: start: 202012
  3. HUMINSULIN REGULAR [Suspect]
     Active Substance: INSULIN HUMAN
     Dosage: 8, 11 AND 7 IUS, RESPECTIVELY, THREE TIMES A DAY, AND 5 IUS EXTRA IF NEEDED
     Route: 058
     Dates: start: 202012
  4. ABASAGLAR [Suspect]
     Active Substance: INSULIN GLARGINE
     Indication: DIABETES MELLITUS
     Dosage: 22 INTERNATIONAL UNIT, UNKNOWN
     Route: 058
     Dates: start: 202012
  5. HUMINSULIN REGULAR [Suspect]
     Active Substance: INSULIN HUMAN
     Dosage: 8, 11 AND 7 IUS, RESPECTIVELY, THREE TIMES A DAY, AND 5 IUS EXTRA IF NEEDED
     Route: 058
     Dates: start: 202012

REACTIONS (3)
  - Drug ineffective [Unknown]
  - Blood glucose increased [Unknown]
  - Limb injury [Unknown]
